FAERS Safety Report 8415421-X (Version None)
Quarter: 2012Q2

REPORT INFORMATION
  Report Type: 
  Country: None (occurrence: None)
  Receive Date: 20120606
  Receipt Date: 20120524
  Transmission Date: 20120825
  Serious: Yes (Other)
  Sender: FDA-Public Use
  Company Number: FI-NOVOPROD-350991

PATIENT
  Age: 71 Year
  Sex: Female
  Weight: 100 kg

DRUGS (9)
  1. SPIRONOLACTONE [Concomitant]
     Dosage: 1X1
  2. ATORVASTATIN CALCIUM [Concomitant]
     Dosage: 1X1
  3. GLUCOPHAGE [Concomitant]
     Dosage: 2X1
     Route: 048
  4. POTASSIUM CHLORIDE [Concomitant]
     Dosage: 1X1
  5. CARDACE                            /00574902/ [Concomitant]
     Dosage: 1X2
  6. VICTOZA [Suspect]
     Indication: TYPE 2 DIABETES MELLITUS
     Dosage: 0.6 MG, QD
     Route: 058
     Dates: start: 20120305
  7. VICTOZA [Suspect]
     Dosage: 1.2 MG, QD
     Route: 058
     Dates: end: 20120418
  8. WARFARIN SODIUM [Concomitant]
  9. BISOPROLOL FUMARATE [Concomitant]
     Dosage: 15 MG+12.5 MG

REACTIONS (2)
  - HEART RATE INCREASED [None]
  - ATRIAL FIBRILLATION [None]
